FAERS Safety Report 25274025 (Version 2)
Quarter: 2025Q4

REPORT INFORMATION
  Report Type: Report from Study
  Country: US (occurrence: None)
  Receive Date: 20250506
  Receipt Date: 20251014
  Transmission Date: 20260118
  Serious: Yes (Other)
  Sender: UCB
  Company Number: US-UCBSA-2025001189

PATIENT
  Age: 25 Year
  Weight: 76.2 kg

DRUGS (4)
  1. FINTEPLA [Suspect]
     Active Substance: FENFLURAMINE
     Indication: Severe myoclonic epilepsy of infancy
     Dosage: 0.2496 MILLIGRAM/KILOGRAM/DAY TOTALLY 15.4 MILLIGRAM PER DAY.
  2. FINTEPLA [Suspect]
     Active Substance: FENFLURAMINE
     Dosage: 3.5 MILLILITER, 2X/DAY (BID)
  3. FINTEPLA [Suspect]
     Active Substance: FENFLURAMINE
     Dosage: UNK
  4. FINTEPLA [Suspect]
     Active Substance: FENFLURAMINE
     Dosage: 0.2232 MG/KG/DAY TO A TOTAL OF 15.4 MG/DAY

REACTIONS (3)
  - Left ventricular dilatation [Unknown]
  - Tricuspid valve incompetence [Unknown]
  - Weight decreased [Not Recovered/Not Resolved]
